FAERS Safety Report 11092585 (Version 1)
Quarter: 2015Q2

REPORT INFORMATION
  Report Type: Spontaneous
  Country: FR (occurrence: None)
  Receive Date: 20150504
  Receipt Date: 20150504
  Transmission Date: 20150821
  Serious: Yes (Hospitalization)
  Sender: FDA-Public Use
  Company Number: FR2014GSK026835

PATIENT
  Age: 35 Year
  Sex: Female

DRUGS (4)
  1. TIVICAY [Suspect]
     Active Substance: DOLUTEGRAVIR SODIUM
     Indication: HIV INFECTION
     Route: 048
  2. EMTRICITABINE/TENOFOVIR DISOPROXIL FUMARATE (EMTRICITABINE + TENOFOVIR DISOPROXIL FUMARATE) [Suspect]
     Active Substance: EMTRICITABINE\TENOFOVIR DISOPROXIL
     Indication: HIV INFECTION
  3. ATAZANAVIR + RITONAVIR (ATAZANAVIR SULFATE + RITONAVIR) [Suspect]
     Active Substance: ATAZANAVIR\RITONAVIR
     Indication: HIV INFECTION
  4. PREVISCAN (NOS) (AMBIGUOUS MEDICATION NOS) [Concomitant]

REACTIONS (9)
  - Foetal exposure during pregnancy [None]
  - Viral load increased [None]
  - Exposure during pregnancy [None]
  - Virologic failure [None]
  - Drug resistance [None]
  - Pregnancy [None]
  - Drug level increased [None]
  - Premature delivery [None]
  - Premature rupture of membranes [None]
